FAERS Safety Report 8454349-6 (Version None)
Quarter: 2012Q2

REPORT INFORMATION
  Report Type: 
  Country: None (occurrence: None)
  Receive Date: 20120621
  Receipt Date: 20120420
  Transmission Date: 20120825
  Serious: No
  Sender: FDA-Public Use
  Company Number: US-ALLERGAN-1205719US

PATIENT
  Age: 89 Year
  Sex: Female

DRUGS (13)
  1. FAMERA [Concomitant]
     Indication: NEOPLASM MALIGNANT
     Dosage: 2.5 MG, UNK
     Route: 048
  2. ALLIEVE [Concomitant]
     Indication: PRODUCT USED FOR UNKNOWN INDICATION
     Dosage: UNK
     Route: 048
  3. CARBIDOPA [Concomitant]
     Indication: PARKINSON'S DISEASE
     Dosage: UNK
     Route: 048
  4. MELATONIN [Concomitant]
     Indication: INSOMNIA
     Dosage: UNK
     Route: 048
  5. ALPRAZOLAM [Concomitant]
     Indication: PRODUCT USED FOR UNKNOWN INDICATION
     Dosage: 20 MG, UNK
     Route: 048
  6. LUMIGAN [Suspect]
     Indication: INTRAOCULAR PRESSURE INCREASED
     Dosage: 2 GTT, UNK
     Route: 047
     Dates: start: 20120416
  7. FISH OIL [Concomitant]
     Indication: SUPPLEMENTATION THERAPY
     Dosage: 1 UNK, QD
     Route: 048
  8. BLINK                              /00582501/ [Concomitant]
     Indication: EYE LUBRICATION THERAPY
     Dosage: 1 GTT, TID
     Route: 047
  9. CALCIUM CITRATE [Concomitant]
     Indication: SUPPLEMENTATION THERAPY
     Dosage: UNK
     Route: 048
  10. ALPHAGAN [Concomitant]
     Indication: INTRAOCULAR PRESSURE INCREASED
     Dosage: 2 GTT, TID
     Route: 047
     Dates: start: 20120326
  11. DIOVAN [Concomitant]
     Indication: HYPERTENSION
     Dosage: 80 MG, UNK
     Route: 048
  12. PRAVASTATIN [Concomitant]
     Indication: BLOOD CHOLESTEROL INCREASED
     Dosage: 40 MG, UNK
     Route: 048
  13. GLUCOSAMINE [Concomitant]
     Indication: PRODUCT USED FOR UNKNOWN INDICATION
     Dosage: UNK
     Route: 048

REACTIONS (3)
  - DIZZINESS [None]
  - MALAISE [None]
  - VISION BLURRED [None]
